FAERS Safety Report 7435404-6 (Version None)
Quarter: 2011Q2

REPORT INFORMATION
  Report Type: 
  Country: None (occurrence: None)
  Receive Date: 20110425
  Receipt Date: 20110420
  Transmission Date: 20111010
  Serious: Yes (Other)
  Sender: FDA-Public Use
  Company Number: US-PFIZER INC-2011086789

PATIENT
  Sex: Female
  Weight: 68.027 kg

DRUGS (1)
  1. GEODON [Suspect]
     Indication: DEPRESSION
     Dosage: 40 MG, 2X/DAY
     Route: 048
     Dates: start: 20110401

REACTIONS (8)
  - VISION BLURRED [None]
  - NERVOUSNESS [None]
  - TREMOR [None]
  - BLOOD POTASSIUM DECREASED [None]
  - SCIATICA [None]
  - VITAMIN D DECREASED [None]
  - HEART RATE INCREASED [None]
  - MUSCULAR WEAKNESS [None]
